FAERS Safety Report 16386309 (Version 3)
Quarter: 2019Q2

REPORT INFORMATION
  Report Type: Report from Study
  Country: NL (occurrence: NL)
  Receive Date: 20190603
  Receipt Date: 20190628
  Transmission Date: 20190711
  Serious: Yes (Other)
  Sender: FDA-Public Use
  Company Number: NL-INCYTE CORPORATION-2019IN005569

PATIENT

DRUGS (6)
  1. JAKAVI [Suspect]
     Active Substance: RUXOLITINIB
     Indication: PRODUCT USED FOR UNKNOWN INDICATION
     Dosage: 10 OT, UNK
     Route: 065
     Dates: start: 20180423, end: 20180528
  2. JAKAVI [Suspect]
     Active Substance: RUXOLITINIB
     Dosage: 20 OT, UNK
     Route: 065
     Dates: start: 20180529, end: 20180903
  3. JAKAVI [Suspect]
     Active Substance: RUXOLITINIB
     Dosage: 30 OT, UNK
     Route: 065
     Dates: start: 20180903
  4. METOPROLOL. [Concomitant]
     Active Substance: METOPROLOL
     Indication: HYPERTENSION
     Dosage: UNK
     Route: 065
  5. LEVOTHYROXINE. [Concomitant]
     Active Substance: LEVOTHYROXINE
     Indication: HYPOTHYROIDISM
     Dosage: 88 OT, UNK
     Route: 065
     Dates: start: 20170731
  6. AMLODIPINE [Concomitant]
     Active Substance: AMLODIPINE BESYLATE
     Indication: HYPERTENSION
     Dosage: 10 OT, UNK
     Route: 065
     Dates: start: 20151201

REACTIONS (11)
  - Flatulence [Recovered/Resolved]
  - Headache [Not Recovered/Not Resolved]
  - Abdominal distension [Recovered/Resolved]
  - Bone pain [Recovered/Resolved]
  - Weight increased [Not Recovered/Not Resolved]
  - Weight increased [Recovered/Resolved]
  - Influenza like illness [Recovered/Resolved]
  - Parotitis [Recovered/Resolved]
  - Non-cardiac chest pain [Recovered/Resolved]
  - Pneumonia [Recovered/Resolved]
  - Dry eye [Not Recovered/Not Resolved]

NARRATIVE: CASE EVENT DATE: 20180528
